FAERS Safety Report 10079430 (Version 2)
Quarter: 2014Q2

REPORT INFORMATION
  Report Type: Spontaneous
  Country: US (occurrence: US)
  Receive Date: 20140415
  Receipt Date: 20140415
  Transmission Date: 20141212
  Serious: Yes (Death)
  Sender: FDA-Public Use
  Company Number: US-ACTELION-A-US2014-93391

PATIENT
  Age: 72 Year
  Sex: Male

DRUGS (3)
  1. OPSUMIT [Suspect]
     Indication: PULMONARY ARTERIAL HYPERTENSION
     Dosage: 10 MG, QD
     Route: 048
     Dates: start: 201311, end: 201312
  2. VELETRI [Suspect]
     Indication: PULMONARY ARTERIAL HYPERTENSION
     Dosage: 11 NG/KG, PER MIN
     Route: 042
  3. VELETRI [Suspect]
     Dosage: 12 NG/KG, PER MIN
     Route: 042
     Dates: start: 201309

REACTIONS (4)
  - Death [Fatal]
  - Dyspnoea [Recovering/Resolving]
  - Nausea [Unknown]
  - Headache [Unknown]
